FAERS Safety Report 12875454 (Version 1)
Quarter: 2016Q4

REPORT INFORMATION
  Report Type: Spontaneous
  Country: GB (occurrence: GB)
  Receive Date: 20161024
  Receipt Date: 20161024
  Transmission Date: 20170207
  Serious: Yes (Disabling, Other)
  Sender: FDA-Public Use
  Company Number: GB-009507513-1610GBR011117

PATIENT
  Age: 35 Year
  Sex: Female
  Weight: 66.67 kg

DRUGS (3)
  1. NEXPLANON [Suspect]
     Active Substance: ETONOGESTREL
     Indication: CONTRACEPTIVE IMPLANT
     Dosage: INTERNAL RELEASE OVER TIME
     Route: 059
     Dates: start: 20130501, end: 20160505
  2. CERAZETTE [Concomitant]
     Active Substance: DESOGESTREL
     Route: 048
     Dates: start: 20120303, end: 20130425
  3. RIGEVIDON [Concomitant]
     Active Substance: ETHINYL ESTRADIOL\LEVONORGESTREL
     Dates: start: 20160925, end: 20161008

REACTIONS (28)
  - Abnormal weight gain [Recovering/Resolving]
  - Rosacea [Recovered/Resolved with Sequelae]
  - Decreased interest [Recovered/Resolved]
  - Memory impairment [Recovered/Resolved]
  - Skin wrinkling [Recovering/Resolving]
  - Insomnia [Recovered/Resolved]
  - Anxiety [Recovered/Resolved]
  - Irritability [Recovered/Resolved]
  - Arthralgia [Recovering/Resolving]
  - Breast mass [Recovered/Resolved]
  - Dyspareunia [Recovered/Resolved]
  - Menstruation irregular [Recovered/Resolved with Sequelae]
  - Breast pain [Recovered/Resolved]
  - Asthenia [Unknown]
  - Fatigue [Recovered/Resolved]
  - Immune system disorder [Recovered/Resolved]
  - Alopecia [Recovered/Resolved with Sequelae]
  - Joint swelling [Recovering/Resolving]
  - Dry skin [Recovering/Resolving]
  - Mood swings [Recovered/Resolved]
  - Vulvovaginal dryness [Recovered/Resolved]
  - Loss of libido [Recovered/Resolved]
  - Depression [Recovered/Resolved]
  - Gingivitis [Recovered/Resolved]
  - Breast discomfort [Recovered/Resolved]
  - Skin exfoliation [Recovering/Resolving]
  - Abdominal distension [Recovering/Resolving]
  - Acne [Recovering/Resolving]

NARRATIVE: CASE EVENT DATE: 20130501
